FAERS Safety Report 4732894-4 (Version None)
Quarter: 2005Q3

REPORT INFORMATION
  Report Type: 
  Country: None (occurrence: None)
  Receive Date: 20050803
  Receipt Date: 20050422
  Transmission Date: 20060218
  Serious: No
  Sender: FDA-Public Use
  Company Number: US-GLAXOSMITHKLINE-A0556790A

PATIENT
  Sex: Male

DRUGS (2)
  1. AVANDAMET [Suspect]
     Indication: DRUG USE FOR UNKNOWN INDICATION
     Route: 048
  2. INSULIN [Concomitant]

REACTIONS (2)
  - BLOOD GLUCOSE DECREASED [None]
  - PHARMACEUTICAL PRODUCT COMPLAINT [None]
